FAERS Safety Report 10177244 (Version 1)
Quarter: 2014Q2

REPORT INFORMATION
  Report Type: Spontaneous
  Country: MX (occurrence: MX)
  Receive Date: 20140516
  Receipt Date: 20140516
  Transmission Date: 20141212
  Serious: Yes (Death)
  Sender: FDA-Public Use
  Company Number: PHHY2014MX056627

PATIENT
  Age: 49 Year
  Sex: Male

DRUGS (8)
  1. BROMOCRIPTINE [Suspect]
     Indication: ACROMEGALY
     Dosage: UNK
     Dates: start: 1995
  2. BROMOCRIPTINE [Suspect]
     Dosage: UNK
     Dates: start: 200801
  3. SOMATOSTATIN AND ANALOGUES [Suspect]
     Indication: ACROMEGALY
     Dosage: 300 UG, PER DAY
     Route: 058
  4. SOMATOSTATIN AND ANALOGUES [Suspect]
     Dosage: UNK
     Dates: start: 200801
  5. HYDROCORTISONE [Concomitant]
     Dosage: 15 MG, PER DAY
  6. LEVOTHYROXINE [Concomitant]
     Dosage: 100 UG PER DAY
  7. TESTOSTERONE [Concomitant]
     Indication: ACROMEGALY
     Dosage: 5 G,  (ONE SACHET/DAY)
     Route: 062
  8. CABERGOLINE [Concomitant]
     Indication: ACROMEGALY
     Dosage: 1 MG, QW

REACTIONS (2)
  - Death [Fatal]
  - Drug ineffective [Unknown]
